FAERS Safety Report 12103760 (Version 2)
Quarter: 2016Q2

REPORT INFORMATION
  Report Type: Spontaneous
  Country: DE (occurrence: DE)
  Receive Date: 20160223
  Receipt Date: 20160413
  Transmission Date: 20160815
  Serious: Yes (Hospitalization)
  Sender: FDA-Public Use
  Company Number: DE-ABBVIE-16K-062-1563202-00

PATIENT
  Age: 33 Year
  Sex: Male
  Weight: 75 kg

DRUGS (6)
  1. IBUPROFEN. [Concomitant]
     Active Substance: IBUPROFEN
     Indication: PRODUCT USED FOR UNKNOWN INDICATION
     Dosage: 200 TO 400MG
     Dates: start: 2006
  2. HUMIRA [Suspect]
     Active Substance: ADALIMUMAB
     Indication: COLITIS ULCERATIVE
     Route: 058
     Dates: start: 200409, end: 200412
  3. HUMIRA [Suspect]
     Active Substance: ADALIMUMAB
     Indication: PSORIATIC ARTHROPATHY
     Route: 058
     Dates: start: 200510, end: 20160207
  4. METHOTREXATE [Concomitant]
     Active Substance: METHOTREXATE
     Route: 058
     Dates: start: 200905
  5. METHOTREXATE [Concomitant]
     Active Substance: METHOTREXATE
     Indication: PSORIATIC ARTHROPATHY
     Dosage: DISCONTINUED DUE TO FAMILY PLANNING
     Route: 058
     Dates: start: 200610, end: 200901
  6. MESALAZINE [Concomitant]
     Active Substance: MESALAMINE
     Indication: COLITIS ULCERATIVE
     Dates: start: 2006

REACTIONS (18)
  - Myalgia [Recovering/Resolving]
  - Groin pain [Unknown]
  - Blood creatine phosphokinase increased [Recovering/Resolving]
  - Arthropathy [Unknown]
  - Headache [Unknown]
  - Rhabdomyolysis [Recovered/Resolved]
  - Joint dislocation [Unknown]
  - Fatigue [Unknown]
  - Myositis [Recovered/Resolved]
  - Arthritis [Unknown]
  - Colitis ulcerative [Unknown]
  - Colitis ulcerative [Recovered/Resolved]
  - Colitis ulcerative [Recovering/Resolving]
  - Myalgia [Unknown]
  - Colitis ulcerative [Recovering/Resolving]
  - Superinfection [Recovering/Resolving]
  - Colitis ulcerative [Unknown]
  - Bone pain [Unknown]

NARRATIVE: CASE EVENT DATE: 200607
